FAERS Safety Report 4592960-3 (Version None)
Quarter: 2005Q1

REPORT INFORMATION
  Report Type: 
  Country: None (occurrence: None)
  Receive Date: 20050228
  Receipt Date: 20050223
  Transmission Date: 20050727
  Serious: Yes (Other)
  Sender: FDA-Public Use
  Company Number: DE-GLAXOSMITHKLINE-D0045975A

PATIENT
  Sex: Female

DRUGS (1)
  1. ELMENDOS [Suspect]
     Route: 048
     Dates: start: 20040101

REACTIONS (2)
  - BREAST DISORDER [None]
  - PSEUDO LYMPHOMA [None]
